FAERS Safety Report 9022959 (Version 1)
Quarter: 2013Q1

REPORT INFORMATION
  Report Type: Spontaneous
  Country: US (occurrence: US)
  Receive Date: 20130120
  Receipt Date: 20130120
  Transmission Date: 20140127
  Serious: No
  Sender: FDA-Public Use
  Company Number: US-ALLERGAN-1216282US

PATIENT
  Age: 70 Year
  Sex: Female

DRUGS (5)
  1. BOTOX COSMETIC [Suspect]
     Indication: SKIN WRINKLING
     Dosage: UNK, SINGLE
     Route: 030
     Dates: start: 20121026, end: 20121026
  2. ATENOLOL [Concomitant]
     Indication: HYPERTENSION
     Dosage: 100 MG, BID
     Route: 048
  3. LISINOPRIL/HCTZ [Concomitant]
     Indication: HYPERTENSION
     Dosage: UNK UNK, QAM
     Route: 048
  4. DILTIAZEM CD [Concomitant]
     Indication: HYPERTENSION
     Dosage: 180 MG, QD
     Route: 048
  5. NEXIUM [Concomitant]
     Indication: ABDOMINAL DISCOMFORT
     Dosage: 40 MG, QD
     Route: 048

REACTIONS (2)
  - Vision blurred [Recovering/Resolving]
  - Eyelid ptosis [Recovering/Resolving]
